FAERS Safety Report 8834039 (Version 3)
Quarter: 2012Q4

REPORT INFORMATION
  Report Type: 
  Country: JP (occurrence: JP)
  Receive Date: 20121010
  Receipt Date: 20121023
  Transmission Date: 20130627
  Serious: Yes (Death, Other)
  Sender: FDA-Public Use
  Company Number: JP-PFIZER INC-2012244619

PATIENT
  Age: 5 None
  Sex: Female

DRUGS (3)
  1. METHYLPREDNISOLONE [Suspect]
     Dosage: 20 mg, daily
  2. MYCOPHENOLATE MOFETIL [Suspect]
     Dosage: 1000 mg, daily
  3. TACROLIMUS [Suspect]
     Dosage: 8 mg, daily

REACTIONS (2)
  - Hepatic cyst infection [Fatal]
  - Azotaemia [Fatal]
